FAERS Safety Report 16447183 (Version 9)
Quarter: 2021Q1

REPORT INFORMATION
  Report Type: Report from Study
  Country: TW (occurrence: TW)
  Receive Date: 20190618
  Receipt Date: 20210208
  Transmission Date: 20210419
  Serious: Yes (Hospitalization, Other)
  Sender: FDA-Public Use
  Company Number: TW-INCYTE CORPORATION-2019IN003497

PATIENT

DRUGS (152)
  1. MINOXIDIL. [Concomitant]
     Active Substance: MINOXIDIL
     Dosage: 10 MG
     Route: 048
     Dates: start: 20200821, end: 20200824
  2. DILTIAZEM. [Concomitant]
     Active Substance: DILTIAZEM
     Indication: HYPERTENSIVE HEART DISEASE
     Dosage: 60 MG
     Route: 048
     Dates: start: 20200820, end: 20200820
  3. PENTOXIFYLLINE. [Concomitant]
     Active Substance: PENTOXIFYLLINE
     Dosage: 800 MG
     Route: 048
     Dates: start: 20200114, end: 20200504
  4. PENTOXIFYLLINE. [Concomitant]
     Active Substance: PENTOXIFYLLINE
     Dosage: 400 MG
     Route: 048
     Dates: start: 20200505, end: 20200629
  5. IMIDAPRIL HCL [Concomitant]
     Active Substance: IMIDAPRIL HYDROCHLORIDE
     Dosage: 5 MG
     Route: 048
     Dates: start: 20190407, end: 20190408
  6. IMIDAPRIL HCL [Concomitant]
     Active Substance: IMIDAPRIL HYDROCHLORIDE
     Dosage: 10 MG
     Route: 048
     Dates: start: 20190430, end: 20191014
  7. DOXAZOSIN [Concomitant]
     Active Substance: DOXAZOSIN MESYLATE
     Dosage: 4 MG
     Route: 048
     Dates: start: 20191001, end: 20191001
  8. LERCANIDIPINE [Concomitant]
     Active Substance: LERCANIDIPINE
     Indication: HYPERTENSIVE HEART DISEASE
     Dosage: 10 MG
     Route: 048
     Dates: start: 20190411, end: 20190429
  9. METOLAZONE. [Concomitant]
     Active Substance: METOLAZONE
     Dosage: 0.5 MG
     Route: 048
     Dates: start: 20190420, end: 20190429
  10. JAKAVI [Suspect]
     Active Substance: RUXOLITINIB
     Dosage: 10 MG
     Route: 048
     Dates: start: 20190917, end: 20191014
  11. HYDROXYUREA. [Suspect]
     Active Substance: HYDROXYUREA
     Indication: MYELOFIBROSIS
     Dosage: UNK
     Route: 065
     Dates: start: 20161121, end: 20190227
  12. HYDROCORTISONE. [Concomitant]
     Active Substance: HYDROCORTISONE
     Dosage: 100 MG
     Route: 042
     Dates: start: 20200219, end: 20200219
  13. WARFARIN [Concomitant]
     Active Substance: WARFARIN
     Dosage: 7.5 MG
     Route: 048
     Dates: start: 20190625, end: 20190930
  14. WARFARIN [Concomitant]
     Active Substance: WARFARIN
     Dosage: 7.5 MG
     Route: 048
     Dates: start: 20191001, end: 20191205
  15. VALSARTAN. [Concomitant]
     Active Substance: VALSARTAN
     Indication: HYPERTENSIVE HEART DISEASE
     Dosage: 80 MG
     Route: 048
     Dates: start: 20190609, end: 20190610
  16. MINOXIDIL. [Concomitant]
     Active Substance: MINOXIDIL
     Dosage: 5 MG
     Route: 048
     Dates: start: 20200114, end: 20200504
  17. MINOXIDIL. [Concomitant]
     Active Substance: MINOXIDIL
     Dosage: 10 MG
     Route: 048
     Dates: start: 20200901, end: 20200905
  18. LINAGLIPTIN [Concomitant]
     Active Substance: LINAGLIPTIN
     Dosage: 5 MG
     Route: 048
     Dates: start: 20190509, end: 20190510
  19. INSULIN ASPART [Concomitant]
     Active Substance: INSULIN ASPART
     Dosage: 4 U
     Route: 058
     Dates: start: 20200731, end: 20200731
  20. INSULIN ASPART [Concomitant]
     Active Substance: INSULIN ASPART
     Dosage: 12 U
     Route: 058
     Dates: start: 20200805, end: 20200805
  21. INSULIN ASPART [Concomitant]
     Active Substance: INSULIN ASPART
     Dosage: 4 U
     Route: 058
     Dates: start: 20200811, end: 20200811
  22. INSULIN ASPART [Concomitant]
     Active Substance: INSULIN ASPART
     Dosage: 8 U
     Route: 058
     Dates: start: 20200828, end: 20200829
  23. MEGESTROL [Concomitant]
     Active Substance: MEGESTROL
     Indication: PROPHYLAXIS
     Dosage: 400 MG
     Route: 048
     Dates: start: 20191114, end: 20191128
  24. IMIDAPRIL HCL [Concomitant]
     Active Substance: IMIDAPRIL HYDROCHLORIDE
     Indication: HYPERTENSIVE HEART DISEASE
     Dosage: 5 MG
     Route: 048
     Dates: start: 20190305, end: 20190403
  25. DOXAZOSIN [Concomitant]
     Active Substance: DOXAZOSIN MESYLATE
     Dosage: 4 MG
     Route: 048
     Dates: start: 20190509, end: 20190510
  26. SEVELAMER CARBONATE. [Concomitant]
     Active Substance: SEVELAMER CARBONATE
     Indication: CHRONIC KIDNEY DISEASE
     Dosage: 0.8 G
     Route: 048
     Dates: start: 20191113, end: 20191119
  27. ESTAZOLAM. [Concomitant]
     Active Substance: ESTAZOLAM
     Indication: PRODUCT USED FOR UNKNOWN INDICATION
     Dosage: 1 MG
     Route: 048
     Dates: start: 20191014, end: 20191021
  28. LABETALOL [Concomitant]
     Active Substance: LABETALOL\LABETALOL HYDROCHLORIDE
     Dosage: 25 MG
     Route: 042
     Dates: start: 20191213, end: 20191213
  29. LABETALOL [Concomitant]
     Active Substance: LABETALOL\LABETALOL HYDROCHLORIDE
     Dosage: 25 MG
     Route: 042
     Dates: start: 20200818, end: 20200818
  30. METOCLOPRAMIDE. [Concomitant]
     Active Substance: METOCLOPRAMIDE
     Indication: HYPERTENSIVE HEART DISEASE
     Dosage: 5 MG
     Route: 048
     Dates: start: 20190423, end: 20190429
  31. FEBUXOSTAT. [Concomitant]
     Active Substance: FEBUXOSTAT
     Indication: HYPERURICAEMIA
     Dosage: 40 MG
     Route: 048
     Dates: start: 20140930, end: 20191223
  32. HYDRALAZINE [Concomitant]
     Active Substance: HYDRALAZINE HYDROCHLORIDE
     Dosage: 10 MG
     Route: 048
     Dates: start: 20200805
  33. HYDREA [Concomitant]
     Active Substance: HYDROXYUREA
     Indication: MYELODYSPLASTIC SYNDROME
     Dosage: UNK
     Route: 065
  34. AMLODIPINE, VALSARTAN AND HYDROCHLOROTHIAZIDE [Concomitant]
     Active Substance: AMLODIPINE BESYLATE\HYDROCHLOROTHIAZIDE\VALSARTAN
     Dosage: 10/ 160/ 25 MG
     Route: 048
     Dates: start: 20191213, end: 20200113
  35. ALPRAZOLAM. [Concomitant]
     Active Substance: ALPRAZOLAM
     Indication: INSOMNIA
     Dosage: 0.5 MG
     Route: 048
     Dates: start: 20170410, end: 20200113
  36. BISOPROLOL [Concomitant]
     Active Substance: BISOPROLOL
     Indication: HYPERTENSIVE HEART DISEASE
     Dosage: 1.25 MG
     Route: 048
     Dates: start: 20171228, end: 20190122
  37. BISOPROLOL [Concomitant]
     Active Substance: BISOPROLOL
     Dosage: 1.25 MG
     Route: 048
     Dates: start: 20190123, end: 20191115
  38. BISOPROLOL [Concomitant]
     Active Substance: BISOPROLOL
     Dosage: 1.25 MG
     Route: 048
     Dates: start: 20190331, end: 20190429
  39. HYDROCORTISONE. [Concomitant]
     Active Substance: HYDROCORTISONE
     Dosage: 100 MG
     Route: 042
     Dates: start: 20191220, end: 20191220
  40. CIPROFLOXACIN. [Concomitant]
     Active Substance: CIPROFLOXACIN
     Indication: INFECTION PROPHYLAXIS
     Dosage: 400 MG, BOT
     Route: 042
     Dates: start: 20191120, end: 20191121
  41. OLMESARTAN MEDOXOMIL. [Concomitant]
     Active Substance: OLMESARTAN MEDOXOMIL
     Indication: HYPERTENSIVE HEART DISEASE
     Dosage: 20 MG
     Route: 048
     Dates: start: 20200820, end: 20200905
  42. CHLORPHENIRAMINE [CHLORPHENAMINE] [Concomitant]
     Active Substance: CHLORPHENIRAMINE
     Indication: ALLERGY PROPHYLAXIS
     Dosage: 5 MG, AMP
     Route: 042
     Dates: start: 20181030, end: 20181030
  43. PENTOXIFYLLINE. [Concomitant]
     Active Substance: PENTOXIFYLLINE
     Dosage: 400 MG
     Route: 048
     Dates: start: 20190430, end: 20191111
  44. INSULIN ASPART [Concomitant]
     Active Substance: INSULIN ASPART
     Dosage: 12 U
     Route: 058
     Dates: start: 20200810, end: 20200810
  45. CARVEDILOL. [Concomitant]
     Active Substance: CARVEDILOL
     Indication: HYPERTENSIVE HEART DISEASE
     Dosage: 1.5 MG
     Route: 048
     Dates: start: 20190726, end: 20190806
  46. CARVEDILOL. [Concomitant]
     Active Substance: CARVEDILOL
     Dosage: 1.5 MG
     Route: 048
     Dates: start: 20191214, end: 20200113
  47. DOXAZOSIN [Concomitant]
     Active Substance: DOXAZOSIN MESYLATE
     Dosage: 4 MG
     Route: 048
     Dates: start: 20190723, end: 20190727
  48. DOXAZOSIN [Concomitant]
     Active Substance: DOXAZOSIN MESYLATE
     Dosage: 4 MG
     Route: 048
     Dates: start: 20190727, end: 20190806
  49. DARBEPOETIN ALFA [Concomitant]
     Active Substance: DARBEPOETIN ALFA
     Indication: CHRONIC KIDNEY DISEASE
     Dosage: 20 UG, VIAL
     Route: 058
     Dates: start: 20190212, end: 20190304
  50. LABETALOL [Concomitant]
     Active Substance: LABETALOL\LABETALOL HYDROCHLORIDE
     Indication: HYPERTENSIVE HEART DISEASE
     Dosage: 12.5 MG
     Route: 042
     Dates: start: 20181118, end: 20181118
  51. JAKAVI [Suspect]
     Active Substance: RUXOLITINIB
     Dosage: 15 MG (DAILY)
     Route: 048
     Dates: start: 20190717, end: 20190902
  52. JAKAVI [Suspect]
     Active Substance: RUXOLITINIB
     Dosage: 20 MG (DAILY)
     Route: 048
     Dates: start: 20191224, end: 20200705
  53. AMLODIPINE, VALSARTAN AND HYDROCHLOROTHIAZIDE [Concomitant]
     Active Substance: AMLODIPINE BESYLATE\HYDROCHLOROTHIAZIDE\VALSARTAN
     Dosage: 10/ 160/ 25 MG
     Route: 048
     Dates: start: 20200814, end: 20200819
  54. BISOPROLOL [Concomitant]
     Active Substance: BISOPROLOL
     Dosage: 1.25 MG
     Route: 048
     Dates: start: 20191119, end: 20191128
  55. HYDROCORTISONE. [Concomitant]
     Active Substance: HYDROCORTISONE
     Dosage: 100 MG
     Route: 042
     Dates: start: 20190330, end: 20190330
  56. FUROSEMIDE. [Concomitant]
     Active Substance: FUROSEMIDE
     Indication: HYPERTENSIVE HEART DISEASE
     Dosage: 20 MG
     Route: 042
     Dates: start: 20200526, end: 20200526
  57. NICARDIPINE [Concomitant]
     Active Substance: NICARDIPINE
     Dosage: 50 MG, AMP
     Route: 042
     Dates: start: 20200807, end: 20200818
  58. TOLTERODINE TARTRATE. [Concomitant]
     Active Substance: TOLTERODINE TARTRATE
     Indication: CHRONIC KIDNEY DISEASE
     Dosage: 2 MG
     Route: 048
     Dates: start: 20191119, end: 20191121
  59. TERAZOSIN [Concomitant]
     Active Substance: TERAZOSIN HYDROCHLORIDE
     Indication: HYPERTENSIVE HEART DISEASE
     Dosage: 2 MG
     Route: 048
     Dates: start: 20200813, end: 20200813
  60. WARFARIN [Concomitant]
     Active Substance: WARFARIN
     Dosage: 7.5 MG
     Route: 048
     Dates: start: 20191208, end: 20191223
  61. NIFEDIPINE. [Concomitant]
     Active Substance: NIFEDIPINE
     Dosage: 5 MG
     Route: 048
     Dates: start: 20190423, end: 20190423
  62. NIFEDIPINE. [Concomitant]
     Active Substance: NIFEDIPINE
     Dosage: 5 MG
     Route: 048
     Dates: start: 20190701, end: 20190701
  63. MINOXIDIL. [Concomitant]
     Active Substance: MINOXIDIL
     Dosage: 10 MG
     Route: 048
     Dates: start: 20191221, end: 20191223
  64. INSULIN ASPART [Concomitant]
     Active Substance: INSULIN ASPART
     Indication: DIABETES MELLITUS
     Dosage: 4 U
     Route: 058
     Dates: start: 20200719, end: 20200719
  65. INSULIN ASPART [Concomitant]
     Active Substance: INSULIN ASPART
     Dosage: 6 U
     Route: 058
     Dates: start: 20200731, end: 20200802
  66. DOXAZOSIN [Concomitant]
     Active Substance: DOXAZOSIN MESYLATE
     Dosage: 4 MG
     Route: 048
     Dates: start: 20190612, end: 20190614
  67. CLOPIDOGREL [Concomitant]
     Active Substance: CLOPIDOGREL BISULFATE
     Indication: HYPERTENSIVE HEART DISEASE
     Dosage: 75 MG
     Route: 048
     Dates: start: 20200903, end: 20200905
  68. HYDRALAZINE [Concomitant]
     Active Substance: HYDRALAZINE HYDROCHLORIDE
     Dosage: 10 MG
     Route: 048
     Dates: start: 20190612, end: 20190627
  69. JAKAVI [Suspect]
     Active Substance: RUXOLITINIB
     Indication: MYELOFIBROSIS
     Dosage: 30 MG, UNK
     Route: 048
     Dates: start: 20170104
  70. AMLODIPINE, VALSARTAN AND HYDROCHLOROTHIAZIDE [Concomitant]
     Active Substance: AMLODIPINE BESYLATE\HYDROCHLOROTHIAZIDE\VALSARTAN
     Dosage: 10/ 160/ 25 MG
     Route: 048
     Dates: start: 20190611, end: 20190613
  71. AMLODIPINE [Concomitant]
     Active Substance: AMLODIPINE BESYLATE
     Dosage: 5 MG
     Route: 048
     Dates: start: 20200807, end: 20200807
  72. BETAMETHASONE. [Concomitant]
     Active Substance: BETAMETHASONE
     Indication: PRODUCT USED FOR UNKNOWN INDICATION
     Dosage: 2/ 3.5 MG/ TUB
     Route: 050
     Dates: start: 20200206, end: 20200212
  73. BISOPROLOL [Concomitant]
     Active Substance: BISOPROLOL
     Dosage: 1.25 MG
     Route: 048
     Dates: start: 20190505, end: 20191116
  74. BISOPROLOL [Concomitant]
     Active Substance: BISOPROLOL
     Dosage: 1.25 MG
     Route: 048
     Dates: start: 20200722, end: 20200722
  75. NIFEDIPINE. [Concomitant]
     Active Substance: NIFEDIPINE
     Dosage: 5 MG
     Route: 048
     Dates: start: 20190606, end: 20190606
  76. NIFEDIPINE. [Concomitant]
     Active Substance: NIFEDIPINE
     Dosage: 5 MG
     Route: 048
     Dates: start: 20190627, end: 20190627
  77. MINOXIDIL. [Concomitant]
     Active Substance: MINOXIDIL
     Indication: HYPERTENSIVE HEART DISEASE
     Dosage: 10 MG
     Route: 048
     Dates: start: 20191213, end: 20191213
  78. INSULIN ASPART [Concomitant]
     Active Substance: INSULIN ASPART
     Dosage: 12 U
     Route: 058
     Dates: start: 20200806, end: 20200806
  79. INSULIN ASPART [Concomitant]
     Active Substance: INSULIN ASPART
     Dosage: 18 U
     Route: 058
     Dates: start: 20200808, end: 20200808
  80. INSULIN ASPART [Concomitant]
     Active Substance: INSULIN ASPART
     Dosage: 8 U
     Route: 058
     Dates: start: 20200812, end: 20200814
  81. PAROXETINE. [Concomitant]
     Active Substance: PAROXETINE
     Indication: PRODUCT USED FOR UNKNOWN INDICATION
     Dosage: 10 MG
     Route: 048
     Dates: start: 20191014, end: 20191021
  82. IMIDAPRIL HCL [Concomitant]
     Active Substance: IMIDAPRIL HYDROCHLORIDE
     Dosage: 5 MG
     Route: 048
     Dates: start: 20190419, end: 20190429
  83. DOXAZOSIN [Concomitant]
     Active Substance: DOXAZOSIN MESYLATE
     Indication: HYPERTENSIVE HEART DISEASE
     Dosage: 4 MG
     Route: 048
     Dates: start: 20190411, end: 20190415
  84. DOXAZOSIN [Concomitant]
     Active Substance: DOXAZOSIN MESYLATE
     Dosage: 4 MG
     Route: 048
     Dates: start: 20190415, end: 20190429
  85. DOXAZOSIN [Concomitant]
     Active Substance: DOXAZOSIN MESYLATE
     Dosage: 4 MG
     Route: 048
     Dates: start: 20200707, end: 20200708
  86. FOLIC ACID. [Concomitant]
     Active Substance: FOLIC ACID
     Indication: ANAEMIA
     Dosage: 5 MG
     Route: 048
  87. METOLAZONE. [Concomitant]
     Active Substance: METOLAZONE
     Indication: HYPERTENSIVE HEART DISEASE
     Dosage: 0.5 MG
     Route: 048
     Dates: start: 20190330, end: 20190330
  88. HYDRALAZINE [Concomitant]
     Active Substance: HYDRALAZINE HYDROCHLORIDE
     Dosage: 10 MG
     Route: 048
     Dates: start: 20190630, end: 20190702
  89. AMLODIPINE, VALSARTAN AND HYDROCHLOROTHIAZIDE [Concomitant]
     Active Substance: AMLODIPINE BESYLATE\HYDROCHLOROTHIAZIDE\VALSARTAN
     Indication: HYPERTENSIVE HEART DISEASE
     Dosage: 10/ 160/ 25 MG
     Route: 048
     Dates: start: 20190212, end: 20190304
  90. AMLODIPINE, VALSARTAN AND HYDROCHLOROTHIAZIDE [Concomitant]
     Active Substance: AMLODIPINE BESYLATE\HYDROCHLOROTHIAZIDE\VALSARTAN
     Dosage: 10/ 160/ 25 MG
     Route: 048
     Dates: start: 20200114, end: 20200504
  91. AMLODIPINE [Concomitant]
     Active Substance: AMLODIPINE BESYLATE
     Dosage: 5 MG
     Route: 048
     Dates: start: 20190430, end: 20191014
  92. AMLODIPINE [Concomitant]
     Active Substance: AMLODIPINE BESYLATE
     Dosage: 5 MG
     Route: 048
     Dates: start: 20200820, end: 20200820
  93. AMLODIPINE [Concomitant]
     Active Substance: AMLODIPINE BESYLATE
     Dosage: 5 MG
     Route: 048
     Dates: start: 20200822, end: 20200822
  94. BISOPROLOL [Concomitant]
     Active Substance: BISOPROLOL
     Dosage: 1.25 MG
     Route: 048
     Dates: start: 20200711, end: 20200813
  95. WARFARIN [Concomitant]
     Active Substance: WARFARIN
     Dosage: 7.5 MG
     Route: 048
     Dates: start: 20191224, end: 20200622
  96. DILTIAZEM. [Concomitant]
     Active Substance: DILTIAZEM
     Dosage: 90 MG
     Route: 048
     Dates: start: 20200821, end: 20200904
  97. CARVEDILOL. [Concomitant]
     Active Substance: CARVEDILOL
     Dosage: 1.5 MG
     Route: 048
     Dates: start: 20191210, end: 20191213
  98. LABETALOL [Concomitant]
     Active Substance: LABETALOL\LABETALOL HYDROCHLORIDE
     Dosage: 12.5 MG
     Route: 042
     Dates: start: 20190420, end: 20190420
  99. FEBUXOSTAT. [Concomitant]
     Active Substance: FEBUXOSTAT
     Dosage: 40 MG
     Route: 048
     Dates: start: 20200505, end: 20200708
  100. HYDRALAZINE [Concomitant]
     Active Substance: HYDRALAZINE HYDROCHLORIDE
     Dosage: 10 MG
     Route: 048
     Dates: start: 20200710, end: 20200717
  101. HYDRALAZINE [Concomitant]
     Active Substance: HYDRALAZINE HYDROCHLORIDE
     Dosage: 10 MG
     Route: 048
     Dates: start: 20190712, end: 20200712
  102. ALFACALCIDOL [Concomitant]
     Active Substance: ALFACALCIDOL
     Indication: CHRONIC KIDNEY DISEASE
     Dosage: 0.5 UG
     Route: 048
     Dates: start: 20170601, end: 20190304
  103. HYDROCORTISONE. [Concomitant]
     Active Substance: HYDROCORTISONE
     Indication: ALLERGY PROPHYLAXIS
     Dosage: 100 MG
     Route: 042
     Dates: start: 20181118, end: 20181118
  104. SPIRONOLACTONE. [Concomitant]
     Active Substance: SPIRONOLACTONE
     Indication: HYPERTENSIVE HEART DISEASE
     Dosage: 25 MG
     Route: 048
     Dates: start: 20190430, end: 20190624
  105. DILTIAZEM. [Concomitant]
     Active Substance: DILTIAZEM
     Dosage: 90 MG
     Route: 048
     Dates: start: 20200905, end: 20200905
  106. PENTOXIFYLLINE. [Concomitant]
     Active Substance: PENTOXIFYLLINE
     Indication: PERIPHERAL ARTERIAL OCCLUSIVE DISEASE
     Dosage: 400 MG
     Route: 048
     Dates: start: 20150326, end: 20190429
  107. INSULIN ASPART [Concomitant]
     Active Substance: INSULIN ASPART
     Dosage: 14 U
     Route: 058
     Dates: start: 20200809, end: 20200809
  108. LABETALOL [Concomitant]
     Active Substance: LABETALOL\LABETALOL HYDROCHLORIDE
     Dosage: 12.5 MG
     Route: 042
     Dates: start: 20190719, end: 20190719
  109. FLUOROMETHOLONE. [Concomitant]
     Active Substance: FLUOROMETHOLONE
     Indication: PRODUCT USED FOR UNKNOWN INDICATION
     Dosage: 5 ML
     Route: 050
     Dates: start: 20200206, end: 20200212
  110. DAILYCARE ACTIBEST [Concomitant]
     Indication: PROPHYLAXIS
     Dosage: UNK
     Route: 048
     Dates: start: 20170731, end: 20190805
  111. HCT [Concomitant]
     Active Substance: HYDROCHLOROTHIAZIDE
     Indication: PRODUCT USED FOR UNKNOWN INDICATION
     Dosage: 14 OT, UNK
     Route: 048
  112. HYDRALAZINE [Concomitant]
     Active Substance: HYDRALAZINE HYDROCHLORIDE
     Dosage: 10 MG
     Route: 048
     Dates: start: 20190715, end: 20200720
  113. HYDRALAZINE [Concomitant]
     Active Substance: HYDRALAZINE HYDROCHLORIDE
     Dosage: 10 MG
     Route: 048
     Dates: start: 20190724, end: 20200720
  114. HYDRALAZINE [Concomitant]
     Active Substance: HYDRALAZINE HYDROCHLORIDE
     Dosage: 10 MG
     Route: 048
     Dates: start: 20190724
  115. HYDRALAZINE [Concomitant]
     Active Substance: HYDRALAZINE HYDROCHLORIDE
     Dosage: 10 MG
     Route: 048
     Dates: start: 20200717, end: 20200722
  116. ROSIS [Concomitant]
     Active Substance: FUROSEMIDE
     Indication: ACUTE PULMONARY OEDEMA
     Dosage: 40 MG, TID
     Route: 065
  117. JAKAVI [Suspect]
     Active Substance: RUXOLITINIB
     Dosage: 5 MG (DAILY)
     Route: 065
     Dates: start: 20190903, end: 20190916
  118. ALFACALCIDOL [Concomitant]
     Active Substance: ALFACALCIDOL
     Dosage: 0.5 UG
     Route: 048
     Dates: start: 20200811, end: 20200901
  119. AMLODIPINE BESILATE;VALSARTAN [Concomitant]
     Indication: HYPERTENSIVE HEART DISEASE
     Dosage: 5/160 MG
     Route: 048
     Dates: start: 20200719, end: 20200722
  120. AMLODIPINE [Concomitant]
     Active Substance: AMLODIPINE BESYLATE
     Dosage: 5 MG
     Route: 048
     Dates: start: 20190305, end: 20190411
  121. KETOSTERIL [Concomitant]
     Active Substance: AMINO ACIDS, SOURCE UNSPECIFIED
     Dosage: 2
     Route: 048
     Dates: start: 20190416, end: 20191113
  122. NICARDIPINE [Concomitant]
     Active Substance: NICARDIPINE
     Indication: HYPERTENSIVE HEART DISEASE
     Dosage: 50 MG, AMP
     Route: 042
     Dates: start: 20191002, end: 20191002
  123. TERAZOSIN [Concomitant]
     Active Substance: TERAZOSIN HYDROCHLORIDE
     Dosage: 2 MG
     Route: 048
     Dates: start: 20200814, end: 20200818
  124. WARFARIN [Concomitant]
     Active Substance: WARFARIN
     Indication: HYPERTENSIVE HEART DISEASE
     Dosage: 7.5 MG
     Route: 048
     Dates: start: 20170213, end: 20190329
  125. NIFEDIPINE. [Concomitant]
     Active Substance: NIFEDIPINE
     Dosage: 5 MG
     Route: 048
     Dates: start: 20190610, end: 20190610
  126. MINOXIDIL. [Concomitant]
     Active Substance: MINOXIDIL
     Dosage: 5 MG
     Route: 048
     Dates: start: 20200701, end: 20200701
  127. MINOXIDIL. [Concomitant]
     Active Substance: MINOXIDIL
     Dosage: 10 MG
     Route: 048
     Dates: start: 20200706, end: 20200706
  128. MINOXIDIL. [Concomitant]
     Active Substance: MINOXIDIL
     Dosage: 5 MG
     Route: 048
     Dates: start: 20200825, end: 20200830
  129. LINAGLIPTIN [Concomitant]
     Active Substance: LINAGLIPTIN
     Indication: DIABETES MELLITUS
     Dosage: 5 MG
     Route: 048
     Dates: start: 20190419, end: 20190429
  130. MIRTAZAPINE. [Concomitant]
     Active Substance: MIRTAZAPINE
     Indication: PRODUCT USED FOR UNKNOWN INDICATION
     Dosage: 15 MG
     Route: 048
     Dates: start: 20191007, end: 20191014
  131. INSULIN ASPART [Concomitant]
     Active Substance: INSULIN ASPART
     Dosage: 8 U
     Route: 058
     Dates: start: 20200720, end: 20200720
  132. INSULIN ASPART [Concomitant]
     Active Substance: INSULIN ASPART
     Dosage: 10 U
     Route: 058
     Dates: start: 20200812, end: 20200812
  133. LORAZEPAM. [Concomitant]
     Active Substance: LORAZEPAM
     Indication: INSOMNIA
     Dosage: 0.5 MG
     Route: 048
     Dates: start: 20190415, end: 20190429
  134. LABETALOL [Concomitant]
     Active Substance: LABETALOL\LABETALOL HYDROCHLORIDE
     Dosage: 12.5 MG
     Route: 042
     Dates: start: 20191001, end: 20191001
  135. HYDRALAZINE [Concomitant]
     Active Substance: HYDRALAZINE HYDROCHLORIDE
     Indication: HYPERTENSIVE HEART DISEASE
     Dosage: 56 MG, QID (PRN)
     Route: 048
  136. HYDRALAZINE [Concomitant]
     Active Substance: HYDRALAZINE HYDROCHLORIDE
     Dosage: 10 MG
     Route: 048
     Dates: start: 20200723, end: 20200723
  137. HYDRALAZINE [Concomitant]
     Active Substance: HYDRALAZINE HYDROCHLORIDE
     Dosage: 10 MG
     Route: 048
     Dates: start: 20200815, end: 20200830
  138. JAKAVI [Suspect]
     Active Substance: RUXOLITINIB
     Dosage: 30 MG, UNK
     Route: 048
     Dates: start: 20181030, end: 20190711
  139. JAKAVI [Suspect]
     Active Substance: RUXOLITINIB
     Dosage: 5 MG
     Route: 048
     Dates: start: 20191015, end: 20191223
  140. AMLODIPINE, VALSARTAN AND HYDROCHLOROTHIAZIDE [Concomitant]
     Active Substance: AMLODIPINE BESYLATE\HYDROCHLOROTHIAZIDE\VALSARTAN
     Dosage: 10/ 160/ 25 MG
     Route: 048
     Dates: start: 20190614, end: 20190628
  141. AMLODIPINE [Concomitant]
     Active Substance: AMLODIPINE BESYLATE
     Indication: HYPERTENSIVE HEART DISEASE
     Dosage: 5 MG
     Route: 048
     Dates: start: 20170406, end: 20190211
  142. KETOSTERIL [Concomitant]
     Active Substance: AMINO ACIDS, SOURCE UNSPECIFIED
     Indication: CHRONIC KIDNEY DISEASE
     Dosage: 2
     Route: 048
     Dates: start: 20190212, end: 20190412
  143. BISOPROLOL [Concomitant]
     Active Substance: BISOPROLOL
     Dosage: 1.25 MG
     Route: 048
     Dates: start: 20191116, end: 20191118
  144. CALCIUM POLYSTYRENE SULFONATE [Concomitant]
     Active Substance: CALCIUM POLYSTYRENE SULFONATE
     Indication: CHRONIC KIDNEY DISEASE
     Dosage: 5 G, PAC
     Route: 048
     Dates: start: 20190108, end: 20190114
  145. FUROSEMIDE. [Concomitant]
     Active Substance: FUROSEMIDE
     Indication: PROPHYLAXIS
     Dosage: 20 MG
     Route: 042
     Dates: start: 20181002, end: 20181002
  146. SENNOSIDA A + B [Concomitant]
     Indication: CONSTIPATION
     Dosage: 12 MG
     Route: 048
     Dates: start: 20180125, end: 20191014
  147. ISOSORBIDE MONONITRATE. [Concomitant]
     Active Substance: ISOSORBIDE MONONITRATE
     Indication: HYPERTENSIVE HEART DISEASE
     Dosage: 60 MG
     Route: 048
     Dates: start: 20190712, end: 20190806
  148. WARFARIN [Concomitant]
     Active Substance: WARFARIN
     Dosage: 7.5 MG
     Route: 048
     Dates: start: 20190430, end: 20190513
  149. NIFEDIPINE. [Concomitant]
     Active Substance: NIFEDIPINE
     Indication: HYPERTENSIVE HEART DISEASE
     Dosage: 5 MG
     Route: 048
     Dates: start: 20190422, end: 20190422
  150. NIFEDIPINE. [Concomitant]
     Active Substance: NIFEDIPINE
     Dosage: 5 MG
     Route: 048
     Dates: start: 20191001, end: 20191001
  151. NIFEDIPINE. [Concomitant]
     Active Substance: NIFEDIPINE
     Dosage: 50 MG
     Route: 048
     Dates: start: 20191001, end: 20191001
  152. MINOXIDIL. [Concomitant]
     Active Substance: MINOXIDIL
     Dosage: 5 MG
     Route: 048
     Dates: start: 20200707, end: 20200707

REACTIONS (42)
  - Dyspnoea [Recovered/Resolved]
  - Illness [Unknown]
  - Productive cough [Recovered/Resolved]
  - Thrombocytopenia [Unknown]
  - Burning sensation [Unknown]
  - Arteriosclerosis coronary artery [Unknown]
  - Chills [Recovered/Resolved]
  - Lung consolidation [Recovering/Resolving]
  - Dyspnoea exertional [Unknown]
  - Eosinophilic pneumonia [Recovering/Resolving]
  - Pyrexia [Recovered/Resolved]
  - Pyrexia [Recovering/Resolving]
  - Bone marrow failure [Unknown]
  - Acute kidney injury [Not Recovered/Not Resolved]
  - Interstitial lung disease [Unknown]
  - Pneumonia [Recovered/Resolved]
  - Blood pressure increased [Unknown]
  - Cough [Recovered/Resolved]
  - Epigastric discomfort [Unknown]
  - Pneumocystis jirovecii pneumonia [Unknown]
  - Viral infection [Unknown]
  - Vomiting [Recovered/Resolved]
  - Pneumonia cytomegaloviral [Recovering/Resolving]
  - Aortic arteriosclerosis [Unknown]
  - Choking [Unknown]
  - Dyspnoea [Recovered/Resolved]
  - Chills [Recovered/Resolved]
  - Hyperferritinaemia [Unknown]
  - Hypersensitivity pneumonitis [Recovering/Resolving]
  - Diarrhoea [Unknown]
  - Chills [Recovering/Resolving]
  - Lung infiltration [Recovering/Resolving]
  - Oedema peripheral [Unknown]
  - Spinal compression fracture [Unknown]
  - Malaise [Unknown]
  - Headache [Unknown]
  - Decreased appetite [Unknown]
  - Rash [Unknown]
  - Bacterial infection [Unknown]
  - Anaemia [Unknown]
  - Pyrexia [Recovered/Resolved]
  - Thyroid mass [Unknown]

NARRATIVE: CASE EVENT DATE: 20181118
